FAERS Safety Report 6613266-4 (Version None)
Quarter: 2010Q1

REPORT INFORMATION
  Report Type: 
  Country: None (occurrence: None)
  Receive Date: 20100225
  Receipt Date: 20100129
  Transmission Date: 20100710
  Serious: Yes (Hospitalization)
  Sender: FDA-Public Use
  Company Number: AUR-APL-2010-00320

PATIENT
  Age: 75 Year
  Sex: Male
  Weight: 87 kg

DRUGS (6)
  1. SIMVASTATIN [Suspect]
     Indication: HYPERLIPIDAEMIA
     Dosage: 40MG - ORAL
     Route: 048
     Dates: start: 20080901
  2. FALITHROM FILM-COATED TABLET (PHENPROCOUMON) [Suspect]
     Indication: ATRIAL FIBRILLATION
     Dosage: 3MG - ORAL
     Route: 048
     Dates: start: 20080901, end: 20081204
  3. ASS TABLET (ACETYLSALCYLATE) [Suspect]
     Indication: CORONARY ARTERY DISEASE
     Dosage: 100MG - ORAL
     Route: 048
     Dates: start: 20080901
  4. CLOPIDOGREL [Suspect]
     Indication: CORONARY ARTERY DISEASE
     Dosage: 75MG - ORAL
     Route: 048
     Dates: start: 20080901, end: 20081109
  5. METOPROLOL TARTRATE [Concomitant]
  6. RAMIPRIL [Concomitant]

REACTIONS (4)
  - DIARRHOEA [None]
  - DRUG INTERACTION [None]
  - GASTRITIS [None]
  - OESOPHAGITIS HAEMORRHAGIC [None]
